FAERS Safety Report 7516459-7 (Version None)
Quarter: 2011Q2

REPORT INFORMATION
  Report Type: 
  Country: None (occurrence: None)
  Receive Date: 20110601
  Receipt Date: 20110517
  Transmission Date: 20111010
  Serious: Yes (Hospitalization)
  Sender: FDA-Public Use
  Company Number: A0785686A

PATIENT
  Age: 57 Year
  Sex: Female
  Weight: 85 kg

DRUGS (9)
  1. PLAVIX [Concomitant]
  2. LOPERAMIDE [Concomitant]
  3. ASPIRIN [Concomitant]
  4. AMARYL [Concomitant]
  5. LOVASTATIN [Concomitant]
  6. METOPROLOL TARTRATE [Concomitant]
  7. AVANDARYL [Suspect]
     Route: 048
     Dates: start: 20060401, end: 20060501
  8. AVANDIA [Suspect]
     Dosage: 8MG PER DAY
     Route: 048
     Dates: start: 20050201, end: 20070501
  9. LISINOPRIL [Concomitant]

REACTIONS (9)
  - HYPERTENSION [None]
  - MYOCARDIAL INFARCTION [None]
  - CARDIAC FAILURE CONGESTIVE [None]
  - ARTERIOSCLEROSIS [None]
  - CARDIAC DISORDER [None]
  - MITRAL VALVE INCOMPETENCE [None]
  - CORONARY ARTERY DISEASE [None]
  - CHEST PAIN [None]
  - PAIN [None]
